FAERS Safety Report 5473067-X (Version None)
Quarter: 2007Q4

REPORT INFORMATION
  Report Type: 
  Country: None (occurrence: None)
  Receive Date: 20071001
  Receipt Date: 20070416
  Transmission Date: 20080405
  Serious: No
  Sender: FDA-Public Use
  Company Number: US-ASTRAZENECA-2007UW07422

PATIENT
  Age: 64 Year
  Sex: Female
  Weight: 113.4 kg

DRUGS (8)
  1. ARIMIDEX [Suspect]
     Indication: BREAST CANCER
     Route: 048
  2. KLONOPIN [Concomitant]
  3. ZOLOFT [Concomitant]
  4. REMERON [Concomitant]
  5. NAPROXEN [Concomitant]
  6. PLAVIX [Concomitant]
  7. VITAMIN C AND ZINC [Concomitant]
  8. ENABLEX [Concomitant]

REACTIONS (3)
  - HOT FLUSH [None]
  - URINARY INCONTINENCE [None]
  - URINARY TRACT INFECTION [None]
